FAERS Safety Report 18236815 (Version 1)
Quarter: 2020Q3

REPORT INFORMATION
  Report Type: Spontaneous
  Country: US (occurrence: US)
  Receive Date: 20200907
  Receipt Date: 20200907
  Transmission Date: 20201103
  Serious: Yes (Life-Threatening, Hospitalization, Other)
  Sender: FDA-Public Use
  Company Number: US-HIKMA PHARMACEUTICALS USA INC.-US-H14001-20-04079

PATIENT
  Age: 42 Year
  Sex: Female

DRUGS (4)
  1. HYDROCORTISONE. [Suspect]
     Active Substance: HYDROCORTISONE
     Route: 065
  2. ANAKINRA [Concomitant]
     Active Substance: ANAKINRA
     Indication: JUVENILE IDIOPATHIC ARTHRITIS
     Route: 058
  3. HYDROXYCHLOROQUINE [Suspect]
     Active Substance: HYDROXYCHLOROQUINE
     Indication: JUVENILE IDIOPATHIC ARTHRITIS
     Route: 065
  4. HYDROCORTISONE. [Suspect]
     Active Substance: HYDROCORTISONE
     Indication: JUVENILE IDIOPATHIC ARTHRITIS
     Route: 065

REACTIONS (15)
  - Respiratory failure [Recovered/Resolved]
  - Cervical vertebral fracture [Recovered/Resolved]
  - Endocarditis [Unknown]
  - Myopathy [Recovered/Resolved]
  - Muscle injury [Recovered/Resolved]
  - Subarachnoid haemorrhage [Recovered/Resolved]
  - Tibia fracture [Recovered/Resolved]
  - Fall [Recovered/Resolved]
  - Respiratory acidosis [Recovered/Resolved]
  - Pneumothorax [Recovered/Resolved]
  - Toxicity to various agents [Recovered/Resolved]
  - Embolic stroke [Recovered/Resolved]
  - Encephalopathy [Recovered/Resolved]
  - Hypercapnia [Recovered/Resolved]
  - Diaphragm muscle weakness [Recovered/Resolved]
